FAERS Safety Report 23166082 (Version 1)
Quarter: 2023Q4

REPORT INFORMATION
  Report Type: Spontaneous
  Country: US (occurrence: None)
  Receive Date: 20231109
  Receipt Date: 20231109
  Transmission Date: 20240110
  Serious: Yes (Other)
  Sender: FDA-Public Use
  Company Number: None

PATIENT
  Age: 66 Year
  Sex: Female
  Weight: 49.17 kg

DRUGS (1)
  1. PRALUENT [Suspect]
     Active Substance: ALIROCUMAB
     Indication: Hyperlipidaemia
     Dosage: OTHER FREQUENCY : Q14 DAYS;?
     Route: 058
     Dates: start: 20230915

REACTIONS (2)
  - Tooth discolouration [None]
  - Gingival discolouration [None]

NARRATIVE: CASE EVENT DATE: 20231109
